FAERS Safety Report 15019881 (Version 1)
Quarter: 2018Q2

REPORT INFORMATION
  Report Type: Spontaneous
  Country: ES (occurrence: ES)
  Receive Date: 20180618
  Receipt Date: 20180618
  Transmission Date: 20180711
  Serious: Yes (Hospitalization)
  Sender: FDA-Public Use
  Company Number: ES-TEVA-2018-ES-908067

PATIENT
  Age: 85 Year
  Sex: Female
  Weight: 83 kg

DRUGS (9)
  1. VALSART?N + HIDROCLOROTIAZIDA [Concomitant]
     Indication: HYPERTENSION
     Route: 048
     Dates: end: 20171108
  2. PARACETAMOL (12A) [Concomitant]
     Active Substance: ACETAMINOPHEN
     Route: 048
  3. FOSTER 200 MICROGRAMOS/6 MICROGRAMOS POR PULSACION SOLUCION PARA INHAL [Concomitant]
     Dosage: 2 DOSAGE FORMS DAILY;
     Route: 055
  4. VESICARE 5 MG COMPRIMIDOS RECUBIERTOS CON PELICULA , 30 COMPRIMIDOS [Concomitant]
     Dosage: 5 MILLIGRAM DAILY;
     Route: 048
  5. SIMVASTATINA (1023A) [Concomitant]
     Active Substance: SIMVASTATIN
     Indication: HYPERCHOLESTEROLAEMIA
     Dosage: 20 MILLIGRAM DAILY;
     Route: 048
     Dates: end: 20171108
  6. FOSAVANCE 70 MG/5.600 UI COMPRIMIDOS, 4 COMPRIMIDOS [Concomitant]
     Route: 048
     Dates: end: 20171108
  7. NOLOTIL 575 MG CAPSULAS DURAS, 20 C?PSULAS [Concomitant]
     Active Substance: METAMIZOLE MAGNESIUM
     Route: 048
  8. IBUPROFEN. [Suspect]
     Active Substance: IBUPROFEN
     Indication: MUSCULOSKELETAL CHEST PAIN
     Route: 048
     Dates: start: 20171101, end: 20171102
  9. NAPROXENO (2002A) [Suspect]
     Active Substance: NAPROXEN
     Indication: MUSCULOSKELETAL CHEST PAIN
     Route: 048
     Dates: start: 20171101, end: 20171102

REACTIONS (4)
  - Abdominal pain upper [Recovered/Resolved]
  - Nausea [Recovered/Resolved]
  - Haematemesis [Recovered/Resolved]
  - Vomiting [Recovered/Resolved]

NARRATIVE: CASE EVENT DATE: 20171102
